FAERS Safety Report 7772735-4 (Version None)
Quarter: 2011Q3

REPORT INFORMATION
  Report Type: 
  Country: None (occurrence: None)
  Receive Date: 20110922
  Receipt Date: 20101101
  Transmission Date: 20111222
  Serious: No
  Sender: FDA-Public Use
  Company Number: US-ASTRAZENECA-2010SE52048

PATIENT
  Age: 55 Year
  Sex: Female
  Weight: 79.4 kg

DRUGS (4)
  1. PROZAC [Concomitant]
  2. SEROQUEL [Suspect]
     Indication: BIPOLAR I DISORDER
     Route: 048
     Dates: start: 20100901, end: 20101027
  3. SEROQUEL [Suspect]
     Route: 048
     Dates: start: 20101027
  4. LIPITOR [Concomitant]
     Indication: BLOOD CHOLESTEROL INCREASED

REACTIONS (4)
  - NASAL CONGESTION [None]
  - INSOMNIA [None]
  - NASOPHARYNGITIS [None]
  - THERAPEUTIC RESPONSE UNEXPECTED [None]
